FAERS Safety Report 11925145 (Version 3)
Quarter: 2016Q1

REPORT INFORMATION
  Report Type: Spontaneous
  Country: JP (occurrence: JP)
  Receive Date: 20160118
  Receipt Date: 20160224
  Transmission Date: 20160526
  Serious: Yes (Death, Hospitalization)
  Sender: FDA-Public Use
  Company Number: JP-ELI_LILLY_AND_COMPANY-JP201601003832

PATIENT
  Age: 79 Year
  Sex: Male
  Weight: 60 kg

DRUGS (11)
  1. ALIMTA [Suspect]
     Active Substance: PEMETREXED DISODIUM
     Indication: LUNG ADENOCARCINOMA STAGE IV
     Dosage: 500 MG, OTHER
     Route: 042
     Dates: start: 20151020, end: 20151201
  2. CARBOPLATIN. [Suspect]
     Active Substance: CARBOPLATIN
     Indication: LUNG ADENOCARCINOMA STAGE IV
     Dosage: 200 MG, OTHER
     Route: 042
     Dates: start: 20151020, end: 20151201
  3. METHYCOBAL [Concomitant]
     Active Substance: METHYLCOBALAMIN
     Indication: PROPHYLAXIS
     Dosage: UNK
     Route: 030
     Dates: start: 20151013, end: 20151013
  4. DECADRON [Concomitant]
     Active Substance: DEXAMETHASONE
     Dosage: UNK MG, UNK
     Route: 048
     Dates: start: 20151111, end: 20151113
  5. PANVITAN                           /05664401/ [Concomitant]
     Indication: PROPHYLAXIS
     Dosage: UNK
     Route: 048
     Dates: start: 20151013, end: 20151229
  6. DECADRON [Concomitant]
     Active Substance: DEXAMETHASONE
     Indication: PROPHYLAXIS
     Dosage: UNK MG, UNK
     Route: 048
     Dates: start: 20151021, end: 20151023
  7. DECADRON [Concomitant]
     Active Substance: DEXAMETHASONE
     Dosage: UNK MG, UNK
     Route: 048
     Dates: start: 20151202, end: 20151204
  8. ZOMETA [Suspect]
     Active Substance: ZOLEDRONIC ACID
     Indication: METASTASES TO BONE
     Dosage: UNK
     Route: 065
     Dates: start: 20151201, end: 20151201
  9. BLOSTAR M [Concomitant]
     Dosage: UNK
     Route: 048
     Dates: start: 20151202, end: 20151204
  10. BLOSTAR M [Concomitant]
     Indication: PROPHYLAXIS
     Dosage: UNK
     Route: 048
     Dates: start: 20151021, end: 20151023
  11. BLOSTAR M [Concomitant]
     Dosage: UNK
     Route: 048
     Dates: start: 20151111, end: 20151113

REACTIONS (2)
  - Pulmonary oedema [Recovered/Resolved]
  - Death [Fatal]

NARRATIVE: CASE EVENT DATE: 20151215
